FAERS Safety Report 12976730 (Version 1)
Quarter: 2016Q4

REPORT INFORMATION
  Report Type: Spontaneous
  Country: US (occurrence: US)
  Receive Date: 20161128
  Receipt Date: 20161128
  Transmission Date: 20170207
  Serious: Yes (Death)
  Sender: FDA-Public Use
  Company Number: US-ROCHE-1860218

PATIENT
  Age: 49 Year
  Sex: Male

DRUGS (1)
  1. AVASTIN [Suspect]
     Active Substance: BEVACIZUMAB
     Indication: RECTAL CANCER
     Dosage: 25 MG/ML
     Route: 042
     Dates: start: 20151009

REACTIONS (1)
  - Death [Fatal]

NARRATIVE: CASE EVENT DATE: 20161117
